FAERS Safety Report 22066289 (Version 1)
Quarter: 2023Q1

REPORT INFORMATION
  Report Type: Spontaneous
  Country: US (occurrence: None)
  Receive Date: 20230306
  Receipt Date: 20230306
  Transmission Date: 20230417
  Serious: Yes (Death)
  Sender: FDA-Public Use
  Company Number: None

PATIENT
  Age: 75 Year
  Sex: Male

DRUGS (11)
  1. ARANESP [Suspect]
     Active Substance: DARBEPOETIN ALFA
     Indication: Nephrogenic anaemia
     Dosage: OTHER FREQUENCY : EVERY 14 DAYS;?
     Route: 058
     Dates: start: 20220907
  2. PREVYMIS [Suspect]
     Active Substance: LETERMOVIR
     Dosage: FREQUENCY : DAILY;?
     Route: 048
     Dates: start: 20210723
  3. ACYCLOVIR [Concomitant]
     Active Substance: ACYCLOVIR
  4. AZITHROMYCIN [Concomitant]
     Active Substance: AZITHROMYCIN
  5. FOLIC ACID [Concomitant]
     Active Substance: FOLIC ACID
  6. HYDRALAZINE [Concomitant]
     Active Substance: HYDRALAZINE HYDROCHLORIDE
  7. METOPROLOL [Concomitant]
     Active Substance: METOPROLOL
  8. MIRTAZAPINE [Concomitant]
     Active Substance: MIRTAZAPINE
  9. PANTOPRAZOLE [Concomitant]
     Active Substance: PANTOPRAZOLE
  10. PREDNISONE [Concomitant]
     Active Substance: PREDNISONE
  11. TORSEMIDE [Concomitant]
     Active Substance: TORSEMIDE

REACTIONS (1)
  - Death [None]

NARRATIVE: CASE EVENT DATE: 20230213
